FAERS Safety Report 6046008-4 (Version None)
Quarter: 2009Q1

REPORT INFORMATION
  Report Type: 
  Country: None (occurrence: None)
  Receive Date: 20090121
  Receipt Date: 20090105
  Transmission Date: 20090719
  Serious: Yes (Other)
  Sender: FDA-Public Use
  Company Number: CA-JNJCH-2009001701

PATIENT
  Sex: Female

DRUGS (2)
  1. MOTRIN ACTIVE PAIN RELIEVING PATCH [Suspect]
     Indication: MUSCULOSKELETAL PAIN
     Dosage: TEXT:1 PATCH 1 NIGHT
     Route: 062
     Dates: start: 20081228, end: 20081229
  2. CELEBREX [Concomitant]
     Indication: DRUG USE FOR UNKNOWN INDICATION
     Dosage: TEXT:UNSPECIFIED
     Route: 065

REACTIONS (5)
  - APPLICATION SITE BURN [None]
  - APPLICATION SITE DISCOLOURATION [None]
  - APPLICATION SITE ERYTHEMA [None]
  - APPLICATION SITE PAIN [None]
  - APPLICATION SITE VESICLES [None]
